FAERS Safety Report 24791981 (Version 1)
Quarter: 2024Q4

REPORT INFORMATION
  Report Type: Other
  Country: FR (occurrence: FR)
  Receive Date: 20241231
  Receipt Date: 20241231
  Transmission Date: 20250114
  Serious: Yes (Hospitalization)
  Sender: STRIDES
  Company Number: None

PATIENT
  Age: 70 Year
  Sex: Male
  Weight: 96 kg

DRUGS (4)
  1. IBUPROFEN [Interacting]
     Active Substance: IBUPROFEN
     Indication: Product used for unknown indication
     Dosage: 2 DOSAGE FORM, QD
     Route: 048
     Dates: start: 20241119, end: 20241201
  2. CAPTOPRIL [Interacting]
     Active Substance: CAPTOPRIL
     Indication: Product used for unknown indication
     Dosage: 50/25 MG IN THE MORNING
     Route: 048
  3. ESOMEPRAZOLE [Suspect]
     Active Substance: ESOMEPRAZOLE
     Indication: Product used for unknown indication
     Dosage: 20 MILLIGRAM, QD
     Route: 048
     Dates: start: 20241119, end: 20241201
  4. HYDROCHLOROTHIAZIDE [Interacting]
     Active Substance: HYDROCHLOROTHIAZIDE
     Indication: Product used for unknown indication
     Dosage: 50/25 MG IN THE MORNING
     Route: 048

REACTIONS (2)
  - Tubulointerstitial nephritis [Not Recovered/Not Resolved]
  - Rash morbilliform [Unknown]

NARRATIVE: CASE EVENT DATE: 20241202
